FAERS Safety Report 25590115 (Version 1)
Quarter: 2025Q3

REPORT INFORMATION
  Report Type: Spontaneous
  Country: US (occurrence: US)
  Receive Date: 20250722
  Receipt Date: 20250722
  Transmission Date: 20251020
  Serious: Yes (Life-Threatening, Hospitalization)
  Sender: DR REDDYS
  Company Number: US-MLMSERVICE-20250710-PI572930-00273-2

PATIENT
  Age: 18 Year
  Sex: Female

DRUGS (7)
  1. PROPOFOL [Suspect]
     Active Substance: PROPOFOL
     Indication: Sedative therapy
  2. OXYGEN [Concomitant]
     Active Substance: OXYGEN
     Indication: Dyspnoea
  3. OXYGEN [Concomitant]
     Active Substance: OXYGEN
     Indication: Hypoxia
  4. ETOMIDATE [Concomitant]
     Active Substance: ETOMIDATE
     Indication: Sedative therapy
     Route: 042
  5. SUCCINYLCHOLINE [Concomitant]
     Active Substance: SUCCINYLCHOLINE
     Indication: Sedative therapy
     Route: 042
  6. KETAMINE [Concomitant]
     Active Substance: KETAMINE
     Indication: Sedative therapy
  7. VECURONIUM [Concomitant]
     Active Substance: VECURONIUM BROMIDE
     Indication: Chest wall rigidity

REACTIONS (1)
  - Propofol infusion syndrome [Recovering/Resolving]
